FAERS Safety Report 7967862-2 (Version None)
Quarter: 2011Q4

REPORT INFORMATION
  Report Type: 
  Country: None (occurrence: None)
  Receive Date: 20111209
  Receipt Date: 20111129
  Transmission Date: 20120403
  Serious: Yes (Hospitalization)
  Sender: FDA-Public Use
  Company Number: US-BAYER-2011-044914

PATIENT
  Age: 43 Year
  Sex: Female
  Weight: 67.12 kg

DRUGS (8)
  1. ZOCOR [Concomitant]
     Indication: LIPIDS INCREASED
  2. YAZ [Suspect]
     Indication: MENOPAUSAL SYMPTOMS
     Dosage: UNK
     Route: 048
     Dates: start: 20081027, end: 20090617
  3. OMEPRAZOLE [Concomitant]
     Dosage: 20 MG, QD
     Route: 048
     Dates: start: 20070830, end: 20090601
  4. ZOLOFT [Concomitant]
     Indication: MENOPAUSAL SYMPTOMS
  5. ZOLOFT [Concomitant]
     Indication: DEPRESSION
     Dosage: 100 MG, QD
     Route: 048
     Dates: start: 20010101, end: 20090817
  6. LOVASTATIN [Concomitant]
     Indication: BLOOD CHOLESTEROL INCREASED
     Dosage: '20 MG, HS
     Route: 048
     Dates: start: 20070815
  7. PRILOSEC [Concomitant]
     Indication: GASTROOESOPHAGEAL REFLUX DISEASE
  8. VITAMIN TAB [Concomitant]

REACTIONS (8)
  - EMOTIONAL DISTRESS [None]
  - DYSPNOEA [None]
  - MUSCLE SPASMS [None]
  - PULMONARY EMBOLISM [None]
  - PAIN [None]
  - GENERAL PHYSICAL HEALTH DETERIORATION [None]
  - PAIN IN EXTREMITY [None]
  - ANXIETY [None]
